FAERS Safety Report 7454545-0 (Version None)
Quarter: 2011Q2

REPORT INFORMATION
  Report Type: 
  Country: None (occurrence: None)
  Receive Date: 20110503
  Receipt Date: 20110428
  Transmission Date: 20111010
  Serious: Yes (Death, Other)
  Sender: FDA-Public Use
  Company Number: PHHY2011CA26940

PATIENT
  Sex: Female

DRUGS (2)
  1. ZOMETA [Suspect]
     Indication: BREAST CANCER METASTATIC
     Dosage: 4 MG, EVERY 3 WEEKS
     Route: 042
     Dates: start: 20110330
  2. ZOMETA [Suspect]
     Indication: METASTASES TO BONE

REACTIONS (3)
  - TACHYCARDIA [None]
  - DEATH [None]
  - BLOOD PRESSURE INCREASED [None]
